FAERS Safety Report 17052835 (Version 1)
Quarter: 2019Q4

REPORT INFORMATION
  Report Type: Other
  Country: MA (occurrence: MA)
  Receive Date: 20191120
  Receipt Date: 20191120
  Transmission Date: 20200122
  Serious: Yes (Hospitalization, Other)
  Sender: FDA-Public Use
  Company Number: MA-GUARDIAN DRUG COMPANY-2077040

PATIENT
  Age: 62 Year
  Sex: Male

DRUGS (2)
  1. ACENOCOUMAROL [Suspect]
     Active Substance: ACENOCOUMAROL
     Route: 065
  2. CHILDRENS IBUPROFEN [Suspect]
     Active Substance: IBUPROFEN
     Indication: PRODUCT USED FOR UNKNOWN INDICATION
     Route: 065

REACTIONS (2)
  - Pulmonary alveolar haemorrhage [Unknown]
  - Self-medication [Unknown]
